FAERS Safety Report 7948157-X (Version None)
Quarter: 2011Q4

REPORT INFORMATION
  Report Type: 
  Country: None (occurrence: None)
  Receive Date: 20111130
  Receipt Date: 20111122
  Transmission Date: 20120403
  Serious: Yes (Hospitalization)
  Sender: FDA-Public Use
  Company Number: IT-JNJFOC-20111109627

PATIENT
  Age: 83 Year
  Sex: Female

DRUGS (5)
  1. COUMADIN [Concomitant]
     Route: 065
  2. ENTUMIN [Concomitant]
     Route: 065
  3. ESCITALOPRAM [Concomitant]
     Route: 065
  4. LEVOFLOXACIN [Suspect]
     Indication: URINARY TRACT INFECTION
     Route: 048
     Dates: start: 20111103, end: 20111108
  5. PHENOBARBITAL TAB [Concomitant]
     Route: 065

REACTIONS (2)
  - MALAISE [None]
  - RASH PRURITIC [None]
